FAERS Safety Report 8196569-4 (Version None)
Quarter: 2012Q1

REPORT INFORMATION
  Report Type: 
  Country: None (occurrence: None)
  Receive Date: 20120309
  Receipt Date: 20120301
  Transmission Date: 20120608
  Serious: Yes (Other)
  Sender: FDA-Public Use
  Company Number: CA-JNJFOC-20120301329

PATIENT
  Sex: Female
  Weight: 77 kg

DRUGS (1)
  1. REMICADE [Suspect]
     Indication: CROHN'S DISEASE
     Dosage: 8X52 WEEKS
     Route: 042
     Dates: start: 20110101

REACTIONS (3)
  - DRUG SPECIFIC ANTIBODY PRESENT [None]
  - RASH [None]
  - SYSTEMIC LUPUS ERYTHEMATOSUS [None]
